FAERS Safety Report 5079488-1 (Version None)
Quarter: 2006Q3

REPORT INFORMATION
  Report Type: 
  Country: None (occurrence: None)
  Receive Date: 20060808
  Receipt Date: 20060725
  Transmission Date: 20061208
  Serious: Yes (Hospitalization)
  Sender: FDA-Public Use
  Company Number: US200603002652

PATIENT
  Age: 64 Year
  Sex: Female

DRUGS (4)
  1. FORTEO [Suspect]
     Indication: OSTEOPOROSIS
     Dates: start: 20040624
  2. FORTEO PEN (FORTEO PEN) PEN, DISPOSABLE [Concomitant]
  3. CALCIUM (CALCIUM) [Concomitant]
  4. VITAMIN D [Concomitant]

REACTIONS (1)
  - SPINAL COLUMN STENOSIS [None]
